FAERS Safety Report 19007057 (Version 1)
Quarter: 2021Q1

REPORT INFORMATION
  Report Type: Spontaneous
  Country: US (occurrence: US)
  Receive Date: 20210313
  Receipt Date: 20210313
  Transmission Date: 20210420
  Serious: Yes (Life-Threatening, Hospitalization, Disabling, Other)
  Sender: FDA-Public Use
  Company Number: None

PATIENT
  Age: 56 Year
  Sex: Male
  Weight: 81 kg

DRUGS (8)
  1. RANOLAZINE 1000 MG [Suspect]
     Active Substance: RANOLAZINE
     Indication: CARDIAC DISORDER
     Dosage: ?          QUANTITY:1 TABLET(S);?
     Route: 048
     Dates: start: 20210102, end: 20210115
  2. NEXIUM [Concomitant]
     Active Substance: ESOMEPRAZOLE MAGNESIUM
  3. CONCERT [Concomitant]
  4. RANOLAZINE 1000 MG [Suspect]
     Active Substance: RANOLAZINE
     Indication: ANGIOPATHY
     Dosage: ?          QUANTITY:1 TABLET(S);?
     Route: 048
     Dates: start: 20210102, end: 20210115
  5. LAMOTRIGINE. [Concomitant]
     Active Substance: LAMOTRIGINE
  6. CLONAZEPAM. [Concomitant]
     Active Substance: CLONAZEPAM
  7. PEPCID [Concomitant]
     Active Substance: FAMOTIDINE
  8. VIT D [Concomitant]
     Active Substance: VITAMIN D NOS

REACTIONS (5)
  - Transient ischaemic attack [None]
  - Coronary artery bypass [None]
  - Electrocardiogram abnormal [None]
  - Chest pain [None]
  - Blood pressure increased [None]

NARRATIVE: CASE EVENT DATE: 20210123
